FAERS Safety Report 5819495-1 (Version None)
Quarter: 2008Q3

REPORT INFORMATION
  Report Type: 
  Country: None (occurrence: None)
  Receive Date: 20080723
  Receipt Date: 20080714
  Transmission Date: 20090109
  Serious: Yes (Hospitalization)
  Sender: FDA-Public Use
  Company Number: SE-ELI_LILLY_AND_COMPANY-SE200807002564

PATIENT
  Sex: Female

DRUGS (13)
  1. FORTEO [Suspect]
     Dosage: 20 UG, UNKNOWN
     Route: 065
  2. CALCICHEW D3 [Concomitant]
     Dosage: UNK, UNKNOWN
     Route: 065
  3. CORDARONE [Concomitant]
     Dosage: UNK, UNKNOWN
     Route: 065
  4. METOPROLOL TARTRATE [Concomitant]
     Dosage: UNK, UNKNOWN
     Route: 065
  5. FELODIPINE [Concomitant]
     Dosage: UNK, UNKNOWN
     Route: 065
  6. ENALAPRIL MALEATE [Concomitant]
     Dosage: UNK, UNKNOWN
     Route: 065
  7. SIMVASTATIN [Concomitant]
     Dosage: UNK, UNKNOWN
     Route: 065
  8. TRAMADOL HCL [Concomitant]
     Dosage: UNK, UNKNOWN
     Route: 065
  9. ACETAMINOPHEN [Concomitant]
     Dosage: 500 MG, UNKNOWN
     Route: 065
  10. B-KOMPLEX FORTE [Concomitant]
     Dosage: UNK, UNKNOWN
     Route: 065
  11. IMPUGAN [Concomitant]
     Dosage: UNK, UNKNOWN
     Route: 065
  12. LAKTULOS RECIP [Concomitant]
     Dosage: 670 MG, UNKNOWN
     Route: 065
  13. ASPIRIN [Concomitant]
     Dosage: 75 MG, UNKNOWN
     Route: 065

REACTIONS (2)
  - CARDIAC FAILURE [None]
  - HYPERCALCAEMIA [None]
